FAERS Safety Report 10305016 (Version 1)
Quarter: 2014Q3

REPORT INFORMATION
  Report Type: Spontaneous
  Country: US (occurrence: None)
  Receive Date: 20140710
  Receipt Date: 20140710
  Transmission Date: 20150326
  Serious: Yes (Other)
  Sender: FDA-Public Use
  Company Number: None

PATIENT
  Age: 53 Year
  Sex: Female
  Weight: 90.27 kg

DRUGS (4)
  1. WELLBUTRIN [Concomitant]
     Active Substance: BUPROPION HYDROCHLORIDE
  2. MELATONIN [Concomitant]
     Active Substance: MELATONIN
  3. ZYRTEC [Concomitant]
     Active Substance: CETIRIZINE HYDROCHLORIDE
  4. LEVOTHYROXINE [Suspect]
     Active Substance: LEVOTHYROXINE
     Indication: HYPOTHYROIDISM
     Dosage: 1
     Route: 048

REACTIONS (10)
  - Insomnia [None]
  - Skin hypertrophy [None]
  - Alopecia [None]
  - Constipation [None]
  - Fatigue [None]
  - Memory impairment [None]
  - Disease recurrence [None]
  - Product substitution issue [None]
  - Depression [None]
  - Myalgia [None]

NARRATIVE: CASE EVENT DATE: 20140101
